FAERS Safety Report 17036637 (Version 1)
Quarter: 2019Q4

REPORT INFORMATION
  Report Type: Spontaneous
  Country: US (occurrence: US)
  Receive Date: 20191015
  Receipt Date: 20191015
  Transmission Date: 20200122
  Serious: Yes (Hospitalization)
  Sender: FDA-Public Use
  Company Number: None

PATIENT
  Age: 23 Year
  Sex: Male
  Weight: 72.8 kg

DRUGS (4)
  1. TAXOL [Suspect]
     Active Substance: PACLITAXEL
     Dates: end: 20190930
  2. IFOSFAMIDE. [Suspect]
     Active Substance: IFOSFAMIDE
     Dates: end: 20191001
  3. NEULASTA [Suspect]
     Active Substance: PEGFILGRASTIM
     Dates: end: 20191007
  4. CISPLATIN. [Suspect]
     Active Substance: CISPLATIN
     Dates: end: 20191001

REACTIONS (4)
  - Blood pressure orthostatic decreased [None]
  - Vomiting [None]
  - Dizziness postural [None]
  - Nausea [None]

NARRATIVE: CASE EVENT DATE: 20191001
